FAERS Safety Report 16238102 (Version 1)
Quarter: 2019Q2

REPORT INFORMATION
  Report Type: Spontaneous
  Country: US (occurrence: US)
  Receive Date: 20190321
  Receipt Date: 20190321
  Transmission Date: 20190711
  Serious: No
  Sender: FDA-Public Use
  Company Number: None

PATIENT
  Age: 66 Year
  Sex: Female

DRUGS (1)
  1. PROLIA [Suspect]
     Active Substance: DENOSUMAB
     Indication: OSTEOPOROSIS
     Dosage: ?          OTHER FREQUENCY:EVERY 6 MONTHS;?
     Route: 058
     Dates: start: 20180711, end: 20180711

REACTIONS (6)
  - Ear pain [None]
  - Injection related reaction [None]
  - Pain in extremity [None]
  - Pain [None]
  - Musculoskeletal pain [None]
  - Pain in jaw [None]

NARRATIVE: CASE EVENT DATE: 20180711
